FAERS Safety Report 25641974 (Version 1)
Quarter: 2025Q3

REPORT INFORMATION
  Report Type: Spontaneous
  Country: US (occurrence: US)
  Receive Date: 20250805
  Receipt Date: 20250805
  Transmission Date: 20251021
  Serious: Yes (Hospitalization)
  Sender: ABBVIE
  Company Number: US-ABBVIE-6399410

PATIENT
  Sex: Male

DRUGS (1)
  1. HUMIRA [Suspect]
     Active Substance: ADALIMUMAB
     Indication: Maternal exposure timing unspecified
     Route: 065

REACTIONS (7)
  - Congenital nose malformation [Recovered/Resolved]
  - Exposure via breast milk [Unknown]
  - Feeding disorder [Recovered/Resolved]
  - Chondropathy [Recovered/Resolved]
  - Dyspnoea [Recovered/Resolved]
  - Foetal dystocia [Recovered/Resolved]
  - Foetal exposure during pregnancy [Unknown]

NARRATIVE: CASE EVENT DATE: 20230101
